FAERS Safety Report 21048225 (Version 5)
Quarter: 2022Q4

REPORT INFORMATION
  Report Type: Spontaneous
  Country: JP (occurrence: JP)
  Receive Date: 20220706
  Receipt Date: 20221025
  Transmission Date: 20230113
  Serious: No
  Sender: FDA-Public Use
  Company Number: JP-MYLANLABS-2022M1050076

PATIENT
  Age: 12 Year
  Sex: Female

DRUGS (1)
  1. EPIPEN [Suspect]
     Active Substance: EPINEPHRINE
     Indication: Food allergy
     Dosage: 0.3 MILLIGRAM, QD
     Route: 030
     Dates: start: 20220630, end: 20220630

REACTIONS (4)
  - Hypoaesthesia [Unknown]
  - Blood pressure increased [Recovered/Resolved]
  - Accidental exposure to product by child [Unknown]
  - Product quality issue [Unknown]

NARRATIVE: CASE EVENT DATE: 20220630
